FAERS Safety Report 12511342 (Version 1)
Quarter: 2016Q2

REPORT INFORMATION
  Report Type: Spontaneous
  Country: JP (occurrence: JP)
  Receive Date: 20160629
  Receipt Date: 20160629
  Transmission Date: 20160815
  Serious: Yes (Hospitalization)
  Sender: FDA-Public Use
  Company Number: JP-BAYER-2016-111891

PATIENT
  Age: 59 Year
  Sex: Male

DRUGS (2)
  1. GADOVIST [Suspect]
     Active Substance: GADOBUTROL
     Indication: OROPHARYNGEAL CANCER
  2. GADOVIST [Suspect]
     Active Substance: GADOBUTROL
     Indication: NUCLEAR MAGNETIC RESONANCE IMAGING
     Dosage: 5.1 ML, ONCE (1.5 ML/SEC)
     Route: 042
     Dates: start: 20160531, end: 20160531

REACTIONS (9)
  - Loss of consciousness [Unknown]
  - Urinary incontinence [Unknown]
  - Clonic convulsion [None]
  - Cold sweat [Unknown]
  - Eye disorder [Unknown]
  - Yawning [Unknown]
  - Oxygen saturation decreased [Unknown]
  - Anaphylactic shock [Unknown]
  - Blood pressure decreased [Unknown]

NARRATIVE: CASE EVENT DATE: 20160531
